FAERS Safety Report 4510255-0 (Version None)
Quarter: 2004Q4

REPORT INFORMATION
  Report Type: 
  Country: None (occurrence: None)
  Receive Date: 20041119
  Receipt Date: 20041103
  Transmission Date: 20050328
  Serious: Yes (Other)
  Sender: FDA-Public Use
  Company Number: FR_041105160

PATIENT
  Sex: Male

DRUGS (1)
  1. XIGRIS [Suspect]
     Dates: start: 20041013

REACTIONS (2)
  - ANTI FACTOR V ANTIBODY POSITIVE [None]
  - PROTHROMBIN LEVEL DECREASED [None]
